FAERS Safety Report 8993310 (Version 3)
Quarter: 2013Q1

REPORT INFORMATION
  Report Type: Spontaneous
  Country: US (occurrence: US)
  Receive Date: 20130102
  Receipt Date: 20130128
  Transmission Date: 20140127
  Serious: No
  Sender: FDA-Public Use
  Company Number: US-PFIZER INC-2013000315

PATIENT
  Age: 65 Year
  Sex: Female
  Weight: 73.5 kg

DRUGS (13)
  1. PRISTIQ [Suspect]
     Indication: DEPRESSION
     Dosage: 100 MG, DAILY
  2. BENADRYL [Concomitant]
     Indication: HYPERSENSITIVITY
     Dosage: UNK
  3. LUTEIN [Concomitant]
     Indication: EYE DISORDER
     Dosage: UNK
  4. FISH OIL [Concomitant]
     Indication: CARDIAC DISORDER
     Dosage: UNK
  5. CALCIUM [Concomitant]
     Indication: BONE DISORDER
     Dosage: UNK
  6. TRIAMTERENE [Concomitant]
     Indication: FLUID RETENTION
     Dosage: UNK
  7. TRIAMTERENE [Concomitant]
     Indication: JOINT SWELLING
  8. ALPRAZOLAM [Concomitant]
     Indication: STRESS
     Dosage: UNK
  9. HYDROCODONE [Concomitant]
     Indication: FIBROMYALGIA
     Dosage: UNK
  10. HYDROCODONE [Concomitant]
     Indication: PAIN
  11. TRAZODONE [Concomitant]
     Indication: SLEEP DISORDER
     Dosage: UNK
  12. SYNTHROID [Concomitant]
     Indication: HYPOTHYROIDISM
     Dosage: UNK
  13. VITAMIN D [Concomitant]
     Indication: ROUTINE HEALTH MAINTENANCE
     Dosage: UNK

REACTIONS (3)
  - Emotional disorder [Recovered/Resolved]
  - Crying [Recovered/Resolved]
  - Depression [Recovered/Resolved]
